FAERS Safety Report 23866897 (Version 1)
Quarter: 2024Q2

REPORT INFORMATION
  Report Type: Spontaneous
  Country: US (occurrence: US)
  Receive Date: 20240517
  Receipt Date: 20240517
  Transmission Date: 20240716
  Serious: No
  Sender: FDA-Public Use
  Company Number: US-HORIZON THERAPEUTICS-HZN-2024-001251

PATIENT

DRUGS (3)
  1. TEPEZZA [Suspect]
     Active Substance: TEPROTUMUMAB-TRBW
     Indication: Product used for unknown indication
     Dosage: FIRST DOSE
     Route: 065
  2. TEPEZZA [Suspect]
     Active Substance: TEPROTUMUMAB-TRBW
     Dosage: EIGHTH DOSE
     Route: 065
     Dates: start: 20231123
  3. METHIMAZOLE [Concomitant]
     Active Substance: METHIMAZOLE

REACTIONS (3)
  - Vertigo [Unknown]
  - Liver function test decreased [Unknown]
  - Hypoacusis [Unknown]

NARRATIVE: CASE EVENT DATE: 20230101
